FAERS Safety Report 7930971-8 (Version None)
Quarter: 2011Q4

REPORT INFORMATION
  Report Type: 
  Country: None (occurrence: None)
  Receive Date: 20111121
  Receipt Date: 20111107
  Transmission Date: 20120403
  Serious: Yes (Hospitalization, Other)
  Sender: FDA-Public Use
  Company Number: US-ROCHE-1011655

PATIENT
  Sex: Female

DRUGS (5)
  1. GEFITINIB [Suspect]
     Indication: BREAST CANCER METASTATIC
     Dosage: ARM D (PHASE II), NO PRIOR CHEMO FOR ADVANCED DISEASE. CYCLE 1-5 (CYCLE= 4WEEKS)
     Route: 048
     Dates: start: 20030416
  2. HERCEPTIN [Suspect]
     Indication: BREAST CANCER METASTATIC
     Dosage: ARM D: LOADING DOSE, OVER 90 MIN ON DAY 1 OF WEEK 1 ONLY, CYCLES 1-5 (CYCLE = 4 WEEKS)
     Route: 042
     Dates: start: 20030416
  3. HERCEPTIN [Suspect]
     Dosage: CYCLE 6+ (CYCLE = 3 WEEKS), OVER 30 MIN ON DAY 1.
     Route: 042
  4. HERCEPTIN [Suspect]
     Dosage: MAINTANENCE DOSE, OVER 30 MIN ON DAY 1 QW, STARTING ON WEEK 2
     Route: 042
  5. GEFITINIB [Suspect]
     Dosage: CYCLE 6+ (CYCLE = 3 WEEKS):
     Route: 048
     Dates: start: 20030616

REACTIONS (5)
  - PRURITUS [None]
  - RASH MACULO-PAPULAR [None]
  - VISION BLURRED [None]
  - DRY SKIN [None]
  - CONJUNCTIVITIS [None]
